FAERS Safety Report 4768969-3 (Version None)
Quarter: 2005Q3

REPORT INFORMATION
  Report Type: 
  Country: None (occurrence: None)
  Receive Date: 20050914
  Receipt Date: 20050901
  Transmission Date: 20060218
  Serious: Yes (Other)
  Sender: FDA-Public Use
  Company Number: 2005123922

PATIENT
  Age: 35 Year
  Sex: Female

DRUGS (1)
  1. DEPO-PROVERA [Suspect]
     Indication: ILL-DEFINED DISORDER
     Dosage: (FIRST INJECTION) , INTRAVENOUS
     Route: 029
     Dates: start: 19980101, end: 19980101

REACTIONS (3)
  - BLOOD CALCIUM DECREASED [None]
  - MUSCLE SPASMS [None]
  - THYROIDECTOMY [None]
